FAERS Safety Report 8078782-X (Version None)
Quarter: 2012Q1

REPORT INFORMATION
  Report Type: 
  Country: None (occurrence: None)
  Receive Date: 20120124
  Receipt Date: 20120110
  Transmission Date: 20120608
  Serious: Yes (Death)
  Sender: FDA-Public Use
  Company Number: 1000027274

PATIENT
  Age: 56 Year
  Sex: Male

DRUGS (8)
  1. OXYCODONE HCL [Suspect]
     Dosage: ORAL
     Route: 048
  2. KETAMINE HCL [Suspect]
     Dosage: ORAL
     Route: 048
  3. MEMANTINE HCL [Suspect]
     Dosage: ORAL
     Route: 048
  4. AMITRIPTYLINE HYDROCHLORIDE [Suspect]
     Dosage: ORAL
     Route: 048
  5. METHADONE HCL [Suspect]
     Dosage: ORAL
     Route: 048
  6. CITALOPRAM HYDROBROMIDE [Suspect]
     Dosage: ORAL
     Route: 048
  7. DIAZEPAM [Suspect]
     Dosage: ORAL
     Route: 048
  8. ETHANOL (ETHANOL) [Suspect]
     Dosage: ORAL
     Route: 048

REACTIONS (2)
  - CARDIO-RESPIRATORY ARREST [None]
  - INTENTIONAL DRUG MISUSE [None]
